FAERS Safety Report 19641530 (Version 1)
Quarter: 2021Q3

REPORT INFORMATION
  Report Type: Spontaneous
  Country: US (occurrence: US)
  Receive Date: 20210731
  Receipt Date: 20210731
  Transmission Date: 20211014
  Serious: Yes (Other)
  Sender: FDA-Public Use
  Company Number: US-ROCHE-2880795

PATIENT
  Sex: Female
  Weight: 72.64 kg

DRUGS (5)
  1. OCREVUS [Suspect]
     Active Substance: OCRELIZUMAB
     Indication: PRIMARY PROGRESSIVE MULTIPLE SCLEROSIS
     Dosage: YES?DATE OF TRATEMENT: 03/DEC/2018, 03/JUN/2019, 17/DEC/2019, 19/DEC/2019,22/MAY/2020 03/AUG/2020, 0
     Route: 042
     Dates: start: 2017
  2. COPAXONE [Concomitant]
     Active Substance: GLATIRAMER ACETATE
  3. VITAMIN C [Concomitant]
     Active Substance: ASCORBIC ACID
     Route: 048
     Dates: start: 202105
  4. GILENYA [Concomitant]
     Active Substance: FINGOLIMOD HYDROCHLORIDE
  5. IRON [Concomitant]
     Active Substance: IRON
     Dates: start: 2020

REACTIONS (2)
  - Therapeutic response shortened [Not Recovered/Not Resolved]
  - Multiple sclerosis relapse [Recovering/Resolving]

NARRATIVE: CASE EVENT DATE: 2018
